FAERS Safety Report 6482592-4 (Version None)
Quarter: 2009Q4

REPORT INFORMATION
  Report Type: 
  Country: None (occurrence: None)
  Receive Date: 20091209
  Receipt Date: 20091201
  Transmission Date: 20100525
  Serious: Yes (Disabling)
  Sender: FDA-Public Use
  Company Number: GB-RANBAXY-2009RR-29544

PATIENT
  Age: 83 Year
  Sex: Male
  Weight: 71 kg

DRUGS (7)
  1. RAMIPRIL [Suspect]
     Indication: HYPERTENSION
     Dosage: 10 MG, QD
     Route: 048
     Dates: start: 20090801, end: 20091101
  2. RAMIPRIL [Suspect]
     Indication: PROPHYLAXIS
  3. ASPIRIN [Concomitant]
     Indication: PLATELET AGGREGATION
     Dosage: 75 MG, UNK
     Route: 048
     Dates: start: 20090701
  4. ISRADIPINE [Concomitant]
     Indication: HYPERTENSION
     Dosage: 2.5 MG, UNK
     Route: 048
     Dates: start: 19890101
  5. MIRTAZAPINE [Concomitant]
     Indication: DEPRESSION
     Dosage: 30 MG, UNK
     Route: 048
     Dates: start: 20090701
  6. SIMVASTATIN [Concomitant]
     Indication: BLOOD CHOLESTEROL
     Dosage: 40 MG, UNK
     Route: 048
     Dates: start: 20090701
  7. ZOLADEX [Concomitant]
     Indication: PROSTATE CANCER
     Dosage: UNK
     Route: 058
     Dates: start: 20090901

REACTIONS (2)
  - ABASIA [None]
  - DYSPNOEA [None]
